FAERS Safety Report 8339449 (Version 2)
Quarter: 2012Q4

REPORT INFORMATION
  Report Type: 
  Country: US (occurrence: US)
  Receive Date: 20120117
  Receipt Date: 20121130
  Transmission Date: 20130627
  Serious: Yes (Hospitalization)
  Sender: FDA-Public Use
  Company Number: US-GLAXOSMITHKLINE-A0928776A

PATIENT
  Age: 60 Year
  Sex: Female

DRUGS (1)
  1. AVANDAMET [Suspect]
     Indication: DIABETES MELLITUS
     Dosage: 1TAB Twice per day
     Route: 048
     Dates: start: 20070201

REACTIONS (3)
  - Cardiac failure congestive [Not Recovered/Not Resolved]
  - Wheezing [Unknown]
  - Chest pain [Unknown]
